FAERS Safety Report 6861918-3 (Version None)
Quarter: 2010Q3

REPORT INFORMATION
  Report Type: 
  Country: None (occurrence: None)
  Receive Date: 20100721
  Receipt Date: 20100712
  Transmission Date: 20110219
  Serious: Yes (Other)
  Sender: FDA-Public Use
  Company Number: GB-ELI_LILLY_AND_COMPANY-GB201007002482

PATIENT
  Sex: Male

DRUGS (2)
  1. BYETTA [Suspect]
     Dosage: 5 UG, UNKNOWN
     Route: 065
  2. BYETTA [Suspect]
     Dosage: 10 UG, UNKNOWN
     Route: 065

REACTIONS (1)
  - GLYCOSYLATED HAEMOGLOBIN INCREASED [None]
